FAERS Safety Report 10838621 (Version 1)
Quarter: 2015Q1

REPORT INFORMATION
  Report Type: Report from Study
  Country: US (occurrence: US)
  Receive Date: 20150219
  Receipt Date: 20150219
  Transmission Date: 20150721
  Serious: No
  Sender: FDA-Public Use
  Company Number: US-ABBVIE-14P-163-1223962-00

PATIENT
  Age: 44 Year
  Sex: Female

DRUGS (15)
  1. TOPAMAX [Concomitant]
     Active Substance: TOPIRAMATE
     Indication: MIGRAINE
  2. LIBRAX [Concomitant]
     Active Substance: CHLORDIAZEPOXIDE HYDROCHLORIDE\CLIDINIUM BROMIDE
     Indication: ABDOMINAL PAIN UPPER
     Dosage: DAILY
  3. DUOFER [Concomitant]
     Indication: MINERAL SUPPLEMENTATION
  4. PENTASA [Concomitant]
     Active Substance: MESALAMINE
     Indication: CROHN^S DISEASE
  5. DUOFER [Concomitant]
     Indication: IRON DEFICIENCY ANAEMIA
  6. BUPROPION [Concomitant]
     Active Substance: BUPROPION
     Indication: MENTAL DISORDER
  7. HUMIRA [Suspect]
     Active Substance: ADALIMUMAB
     Indication: CROHN^S DISEASE
     Dates: start: 20140325, end: 20140325
  8. HUMIRA [Suspect]
     Active Substance: ADALIMUMAB
  9. BUPROPION [Concomitant]
     Active Substance: BUPROPION
     Indication: EX-TOBACCO USER
  10. VITAMIN D3 [Concomitant]
     Active Substance: CHOLECALCIFEROL
     Indication: VITAMIN SUPPLEMENTATION
  11. BUPROPION [Concomitant]
     Active Substance: BUPROPION
     Indication: CROHN^S DISEASE
  12. ENTOCORT [Concomitant]
     Active Substance: BUDESONIDE
     Indication: CROHN^S DISEASE
  13. VITAMIN B12 [Concomitant]
     Active Substance: CYANOCOBALAMIN
     Indication: VITAMIN SUPPLEMENTATION
  14. DEXILANT [Concomitant]
     Active Substance: DEXLANSOPRAZOLE
     Indication: GASTRIC DISORDER
  15. PROBIOTIC ACIDOPHILUS [Concomitant]
     Active Substance: LACTOBACILLUS ACIDOPHILUS
     Indication: GASTRIC DISORDER

REACTIONS (10)
  - Respiratory tract congestion [Not Recovered/Not Resolved]
  - Injection site mass [Not Recovered/Not Resolved]
  - Headache [Recovering/Resolving]
  - Malaise [Recovering/Resolving]
  - Injection site warmth [Not Recovered/Not Resolved]
  - Fatigue [Not Recovered/Not Resolved]
  - Throat irritation [Recovering/Resolving]
  - Neck pain [Recovering/Resolving]
  - Injection site swelling [Not Recovered/Not Resolved]
  - Injection site urticaria [Not Recovered/Not Resolved]

NARRATIVE: CASE EVENT DATE: 201404
